FAERS Safety Report 5041850-0 (Version None)
Quarter: 2006Q2

REPORT INFORMATION
  Report Type: 
  Country: None (occurrence: None)
  Receive Date: 20060627
  Receipt Date: 20060615
  Transmission Date: 20061013
  Serious: Yes (Other)
  Sender: FDA-Public Use
  Company Number: 2006012818

PATIENT
  Sex: Female
  Weight: 85.2762 kg

DRUGS (2)
  1. ZOLOFT [Suspect]
     Indication: ILL-DEFINED DISORDER
  2. SEROQUEL [Suspect]
     Indication: ILL-DEFINED DISORDER

REACTIONS (3)
  - FLUID RETENTION [None]
  - INCREASED APPETITE [None]
  - WEIGHT INCREASED [None]
